FAERS Safety Report 7365195-9 (Version None)
Quarter: 2011Q1

REPORT INFORMATION
  Report Type: 
  Country: None (occurrence: None)
  Receive Date: 20110321
  Receipt Date: 20110307
  Transmission Date: 20110831
  Serious: Yes (Hospitalization)
  Sender: FDA-Public Use
  Company Number: CH-MYLANLABS-2011S1004609

PATIENT
  Age: 88 Year
  Sex: Female

DRUGS (6)
  1. TORASEMIDE [Concomitant]
     Route: 065
  2. CLARITHROMYCIN [Suspect]
     Indication: BRONCHITIS
     Route: 065
  3. ACENOCOUMAROL [Concomitant]
     Route: 065
  4. PROPRANOLOL [Concomitant]
     Route: 065
  5. CALCIUM [Concomitant]
     Route: 048
  6. SIMVASTATIN [Interacting]
     Route: 065

REACTIONS (4)
  - RENAL IMPAIRMENT [None]
  - HEPATOCELLULAR INJURY [None]
  - DRUG INTERACTION [None]
  - RHABDOMYOLYSIS [None]
